FAERS Safety Report 24914844 (Version 1)
Quarter: 2025Q1

REPORT INFORMATION
  Report Type: Spontaneous
  Country: CA (occurrence: CA)
  Receive Date: 20250203
  Receipt Date: 20250203
  Transmission Date: 20250409
  Serious: Yes (Other)
  Sender: ROCHE
  Company Number: CA-002147023-NVSC2025CA010818

PATIENT
  Age: 29 Year
  Sex: Male

DRUGS (12)
  1. OMALIZUMAB [Suspect]
     Active Substance: OMALIZUMAB
     Indication: Asthma
     Dosage: 150 MG, Q4W
     Route: 050
  2. OMALIZUMAB [Suspect]
     Active Substance: OMALIZUMAB
     Route: 050
  3. OMALIZUMAB [Suspect]
     Active Substance: OMALIZUMAB
     Route: 050
  4. OMALIZUMAB [Suspect]
     Active Substance: OMALIZUMAB
     Dosage: 150 MG, Q4W
     Route: 050
  5. OMALIZUMAB [Suspect]
     Active Substance: OMALIZUMAB
     Dosage: 150 MG, Q4W
     Route: 050
  6. OMALIZUMAB [Suspect]
     Active Substance: OMALIZUMAB
     Dosage: 150 MG, Q4W
     Route: 050
  7. OMALIZUMAB [Suspect]
     Active Substance: OMALIZUMAB
     Dosage: 150 MG, Q4W
     Route: 050
  8. OMALIZUMAB [Suspect]
     Active Substance: OMALIZUMAB
     Dosage: 150 MG, Q4W
     Route: 050
  9. OMALIZUMAB [Suspect]
     Active Substance: OMALIZUMAB
     Route: 050
  10. OMALIZUMAB [Suspect]
     Active Substance: OMALIZUMAB
     Dosage: 150 MG, Q4W
     Route: 050
  11. PREDNISONE [Concomitant]
     Active Substance: PREDNISONE
     Indication: Product used for unknown indication
     Route: 065
  12. FLUTICASONE FUROATE [Concomitant]
     Active Substance: FLUTICASONE FUROATE
     Indication: Product used for unknown indication
     Route: 065

REACTIONS (27)
  - Asthma [Unknown]
  - Blood pressure increased [Unknown]
  - Chest discomfort [Unknown]
  - Cough [Unknown]
  - Discomfort [Unknown]
  - Dust allergy [Unknown]
  - Dyspnoea [Unknown]
  - Eczema [Unknown]
  - FEV1/FVC ratio decreased [Unknown]
  - Forced expiratory volume decreased [Unknown]
  - Insomnia [Unknown]
  - Middle insomnia [Unknown]
  - Myalgia [Unknown]
  - Obstructive airways disorder [Unknown]
  - Oropharyngeal pain [Unknown]
  - Perfume sensitivity [Unknown]
  - Pharyngitis streptococcal [Unknown]
  - Physical deconditioning [Unknown]
  - Pyrexia [Unknown]
  - Respiratory tract congestion [Unknown]
  - SARS-CoV-2 test positive [Unknown]
  - Sensitivity to weather change [Unknown]
  - Smoke sensitivity [Unknown]
  - Throat clearing [Unknown]
  - Throat irritation [Unknown]
  - Weight increased [Unknown]
  - Wheezing [Unknown]
